FAERS Safety Report 10140119 (Version 2)
Quarter: 2014Q2

REPORT INFORMATION
  Report Type: Spontaneous
  Country: BR (occurrence: BR)
  Receive Date: 20140429
  Receipt Date: 20140502
  Transmission Date: 20141212
  Serious: Yes (Other)
  Sender: FDA-Public Use
  Company Number: BR-PFIZER INC-2014115209

PATIENT
  Age: 61 Year
  Sex: Male

DRUGS (1)
  1. CHAMPIX [Suspect]
     Dosage: UNK

REACTIONS (4)
  - Cerebellar syndrome [Not Recovered/Not Resolved]
  - Lethargy [Recovering/Resolving]
  - Dysarthria [Recovering/Resolving]
  - Depressed mood [Not Recovered/Not Resolved]
